FAERS Safety Report 23746300 (Version 1)
Quarter: 2024Q2

REPORT INFORMATION
  Report Type: Spontaneous
  Country: US (occurrence: US)
  Receive Date: 20240416
  Receipt Date: 20240416
  Transmission Date: 20240716
  Serious: No
  Sender: FDA-Public Use
  Company Number: US-TEVA-VS-3182451

PATIENT
  Sex: Female

DRUGS (1)
  1. METHYLPHENIDATE HYDROCHLORIDE [Suspect]
     Active Substance: METHYLPHENIDATE HYDROCHLORIDE
     Dosage: 36 MG T
     Route: 065

REACTIONS (6)
  - Hypertension [Unknown]
  - Palpitations [Unknown]
  - Malaise [Unknown]
  - Dizziness [Unknown]
  - Product substitution issue [Unknown]
  - Therapeutic response changed [Unknown]
